FAERS Safety Report 5720903-5 (Version None)
Quarter: 2008Q2

REPORT INFORMATION
  Report Type: 
  Country: None (occurrence: None)
  Receive Date: 20080429
  Receipt Date: 20080421
  Transmission Date: 20081010
  Serious: Yes (Hospitalization)
  Sender: FDA-Public Use
  Company Number: US-SANOFI-SYNTHELABO-D01200802387

PATIENT
  Age: 60 Year
  Sex: Male

DRUGS (18)
  1. LEUCOVORIN CALCIUM [Suspect]
     Route: 042
  2. NAPROXEN [Concomitant]
     Dates: start: 20070612
  3. METOPROLOL TARTRATE [Concomitant]
     Dates: start: 19970314
  4. MECLIZINE HCL [Concomitant]
     Dates: start: 19960723
  5. LISINOPRIL [Concomitant]
     Dates: start: 20070326
  6. FERROUS SULFATE TAB [Concomitant]
     Dates: start: 20070309
  7. ASPIRIN [Concomitant]
     Dates: start: 19960809
  8. ACETAMINOPHEN [Concomitant]
     Dates: start: 19960730
  9. FLUOROURACIL [Suspect]
     Dosage: 400 MG/M?, IV BOLUS D1+D2 FOLLOWED BY 5-FU 2400 MG/M? OVER 46-HOUR CONTINUOUS INFUSION.
     Route: 042
  10. OXALIPLATIN [Suspect]
     Route: 042
  11. LORAZEPAM [Concomitant]
     Dates: start: 20080212
  12. SIMVASTATIN [Concomitant]
     Dates: start: 20071212
  13. EZETIMIBE [Concomitant]
     Dates: start: 20071212
  14. PROCHLORPERAZINE [Concomitant]
     Dates: start: 20071105
  15. ONDASETRON [Concomitant]
     Dates: start: 20071103
  16. NIFEDIPINE [Concomitant]
     Dates: start: 20070913
  17. NITROGLYCERIN [Concomitant]
     Dates: start: 19981029
  18. SR57746 [Suspect]
     Indication: NEUROLOGICAL SYMPTOM
     Route: 048
     Dates: end: 20080325

REACTIONS (8)
  - AMNESIA [None]
  - CAROTID ARTERY OCCLUSION [None]
  - CEREBRAL ATROPHY [None]
  - LOSS OF CONSCIOUSNESS [None]
  - MALIGNANT NEOPLASM PROGRESSION [None]
  - PARAESTHESIA [None]
  - VERTEBRAL ARTERY STENOSIS [None]
  - VITAMIN B12 DEFICIENCY [None]
